FAERS Safety Report 20169676 (Version 5)
Quarter: 2023Q4

REPORT INFORMATION
  Report Type: Spontaneous
  Country: PL (occurrence: PL)
  Receive Date: 20211210
  Receipt Date: 20231010
  Transmission Date: 20240109
  Serious: Yes (Hospitalization, Disabling, Other)
  Sender: FDA-Public Use
  Company Number: PL-Accord-246571

PATIENT
  Age: 83 Year
  Sex: Female
  Weight: 91 kg

DRUGS (28)
  1. FUROSEMIDE [Suspect]
     Active Substance: FUROSEMIDE
     Indication: Product used for unknown indication
     Dosage: 3 TABLETS EVERY 2 DAYS?120 MG, EVERY OTHER DAY
  2. HYDROCHLOROTHIAZIDE [Suspect]
     Active Substance: HYDROCHLOROTHIAZIDE
     Indication: Product used for unknown indication
     Dosage: 1-0-0?25 MG, 1X PER DAY, IN THE MORNING
  3. METOCLOPRAMIDE [Suspect]
     Active Substance: METOCLOPRAMIDE
     Indication: Constipation
     Dosage: TEMPORARILY IN THE EVENT OF CONSTIPATION 2 TABLETS, BUT FOR MANY MONTHS
  4. TORSEMIDE [Suspect]
     Active Substance: TORSEMIDE
     Indication: Product used for unknown indication
  5. ALLOPURINOL [Concomitant]
     Active Substance: ALLOPURINOL
     Indication: Product used for unknown indication
     Dosage: 1-0-0?100 MG, 1X PER DAY, IN THE EVENING
     Route: 048
  6. ATORVASTATIN [Concomitant]
     Active Substance: ATORVASTATIN
     Indication: Product used for unknown indication
     Dosage: 0-0-1?20 MG, 1X PER DAY, IN THE EVENING
  7. BETAHISTINE [Concomitant]
     Active Substance: BETAHISTINE
     Indication: Dizziness
     Dosage: 0-1-0
  8. ISOSORBIDE MONONITRATE [Concomitant]
     Active Substance: ISOSORBIDE MONONITRATE
     Indication: Product used for unknown indication
     Dosage: AS REQUIRED, AVERAGE 1-2 X/ 24 H?50 MG, PER DAY, DURULE
     Route: 048
  9. LEVOTHYROXINE [Concomitant]
     Active Substance: LEVOTHYROXINE
     Indication: Product used for unknown indication
     Dosage: 1-0-0?100 UG, 1X PER DAY, IN THE MORNING
  10. ACETAMINOPHEN [Concomitant]
     Active Substance: ACETAMINOPHEN
     Indication: Product used for unknown indication
     Dosage: 0-0-1?500 MG, 1X PER DAY, IN THE EVENING
  11. RAMIPRIL [Concomitant]
     Active Substance: RAMIPRIL
     Indication: Product used for unknown indication
     Dosage: 1-0-0?5 MG, 1X PER DAY, IN THE MORNING
     Route: 048
  12. SPIRONOLACTONE [Concomitant]
     Active Substance: SPIRONOLACTONE
     Indication: Product used for unknown indication
     Dosage: 0-1-0?100 MG, 1X PER DAY
  13. CITALOPRAM [Concomitant]
     Active Substance: CITALOPRAM HYDROBROMIDE
     Indication: Depression
     Dosage: 1-0-0?40 MG, 1X PER DAY, IN THE MORNING
  14. HYDROXYZINE [Concomitant]
     Active Substance: HYDROXYZINE HYDROCHLORIDE
     Indication: Product used for unknown indication
     Dosage: AS REQUIRED, ON AVERAGE 2 X /?24 H?25 MG, 2X PER DAY
  15. ZOLPIDEM [Concomitant]
     Active Substance: ZOLPIDEM TARTRATE
     Indication: Anxiolytic therapy
     Dosage: 0-0-1?10 MG, 1X PER DAY
  16. ALPRAZOLAM [Concomitant]
     Active Substance: ALPRAZOLAM
     Indication: Anxiolytic therapy
     Dosage: AS REQUIRED, ON AVERAGE 2 X /?24 H?0.5 MG, 2X PER DAY
  17. METOPROLOL [Concomitant]
     Active Substance: METOPROLOL
     Indication: Hypertension
     Dosage: 1-0-1?50 MG, 2X PER DAY
  18. DABIGATRAN ETEXILATE [Concomitant]
     Active Substance: DABIGATRAN ETEXILATE
     Indication: Product used for unknown indication
     Dosage: 1-0-1?110 MG, 2X PER DAY
  19. GLICLAZIDE [Concomitant]
     Active Substance: GLICLAZIDE
     Indication: Product used for unknown indication
     Dosage: 1-1-1?60 MG, 3X PER DAY
  20. POTASSIUM CHLORIDE [Concomitant]
     Active Substance: POTASSIUM CHLORIDE
     Indication: Product used for unknown indication
     Dosage: 1 TABLET EVERY 2 DAYS?391 MG, EVERY OTHER DAY
  21. TRAMADOL [Concomitant]
     Active Substance: TRAMADOL\TRAMADOL HYDROCHLORIDE
     Indication: Pain
     Dosage: 2 TABLETS ON A DAILY BASIS
  22. OMEPRAZOLE [Concomitant]
     Active Substance: OMEPRAZOLE
     Indication: Product used for unknown indication
     Dosage: 1-1-0?20 MG, 2X PER DAY
     Route: 048
  23. ALBUTEROL [Concomitant]
     Active Substance: ALBUTEROL
     Indication: Product used for unknown indication
     Dosage: AS REQUIRED
  24. NIKETHAMIDE [Concomitant]
     Active Substance: NIKETHAMIDE
     Indication: Product used for unknown indication
     Dosage: AS REQUIRED?100 MG, 1X PER DAY, IN THE EVENING?1.5 MG/125 MG, AS NEEDED (WITHDRAWN)
  25. METFORMIN [Concomitant]
     Active Substance: METFORMIN HYDROCHLORIDE
     Indication: Type 2 diabetes mellitus
  26. VORTIOXETINE [Concomitant]
     Active Substance: VORTIOXETINE
     Indication: Product used for unknown indication
     Dosage: 10 MG, QD/0-0-1
  27. QUETIAPINE [Concomitant]
     Active Substance: QUETIAPINE
     Indication: Product used for unknown indication
     Dosage: 25 MG, QD
  28. FUROSEMIDE [Suspect]
     Active Substance: FUROSEMIDE
     Indication: Product used for unknown indication
     Dosage: 120 MG, EVERY OTHER DAY

REACTIONS (20)
  - Blood potassium increased [Unknown]
  - Hyponatraemia [Unknown]
  - Depression [Unknown]
  - Melaena [Unknown]
  - Multiple drug therapy [Unknown]
  - Nausea [Unknown]
  - Abdominal pain upper [Unknown]
  - Arthralgia [Unknown]
  - Blood urea increased [Unknown]
  - Off label use [Unknown]
  - Blood glucose increased [Unknown]
  - Hypotension [Recovering/Resolving]
  - Insomnia [Unknown]
  - Pruritus [Unknown]
  - Blood cholesterol decreased [Unknown]
  - Parkinsonism [Unknown]
  - Blood creatine increased [Unknown]
  - Product administration error [Unknown]
  - Hypoglycaemia [Recovered/Resolved]
  - Stupor [Unknown]

NARRATIVE: CASE EVENT DATE: 20210101
